FAERS Safety Report 11200248 (Version 2)
Quarter: 2016Q1

REPORT INFORMATION
  Report Type: Report from Study
  Country: US (occurrence: US)
  Receive Date: 20150618
  Receipt Date: 20160204
  Transmission Date: 20160525
  Serious: Yes (Other)
  Sender: FDA-Public Use
  Company Number: US-SA-2015SA032689

PATIENT
  Age: 57 Year
  Sex: Female

DRUGS (2)
  1. FENTANYL. [Concomitant]
     Active Substance: FENTANYL
  2. AUBAGIO [Suspect]
     Active Substance: TERIFLUNOMIDE
     Indication: MULTIPLE SCLEROSIS
     Route: 048
     Dates: start: 20150220

REACTIONS (5)
  - Vaginal discharge [Unknown]
  - Nasopharyngitis [Unknown]
  - Alopecia [Not Recovered/Not Resolved]
  - Lower respiratory tract infection [Unknown]
  - Vision blurred [Unknown]

NARRATIVE: CASE EVENT DATE: 2015
